FAERS Safety Report 8517859 (Version 4)
Quarter: 2013Q1

REPORT INFORMATION
  Report Type: Spontaneous
  Country: US (occurrence: US)
  Receive Date: 20120417
  Receipt Date: 20130329
  Transmission Date: 20140127
  Serious: No
  Sender: FDA-Public Use
  Company Number: US-ASTRAZENECA-2012SE02558

PATIENT
  Age: 84 Year
  Sex: Female

DRUGS (5)
  1. NEXIUM [Suspect]
     Indication: GASTROINTESTINAL DISORDER
     Route: 048
  2. MOTRIN [Suspect]
     Route: 065
  3. ALTERNATE MEDICATION [Suspect]
     Route: 065
  4. PROTONIX [Suspect]
     Indication: HERNIA
     Route: 065
  5. PANTOPRAZOLE [Suspect]
     Route: 048

REACTIONS (7)
  - Gastrooesophageal reflux disease [Unknown]
  - Hernia [Unknown]
  - Renal disorder [Unknown]
  - Bladder disorder [Unknown]
  - Headache [Unknown]
  - Systemic lupus erythematosus [Unknown]
  - Drug dose omission [Unknown]
